FAERS Safety Report 12901233 (Version 1)
Quarter: 2016Q4

REPORT INFORMATION
  Report Type: Spontaneous
  Country: US (occurrence: US)
  Receive Date: 20161101
  Receipt Date: 20161101
  Transmission Date: 20170207
  Serious: No
  Sender: FDA-Public Use
  Company Number: US-ELI_LILLY_AND_COMPANY-US201607009140

PATIENT
  Age: 36 Year
  Sex: Female

DRUGS (17)
  1. SOMA [Concomitant]
     Active Substance: CARISOPRODOL
     Dosage: 350 MG, EACH EVENING
     Route: 048
  2. HUMALOG [Concomitant]
     Active Substance: INSULIN LISPRO
     Dosage: 10 IU, QD
     Route: 058
  3. TEMAZEPAM. [Concomitant]
     Active Substance: TEMAZEPAM
     Dosage: 60 MG, EACH EVENING
     Route: 048
  4. CYMBALTA [Suspect]
     Active Substance: DULOXETINE HYDROCHLORIDE
     Indication: PRODUCT USED FOR UNKNOWN INDICATION
     Dosage: 60 MG, BID
     Route: 048
     Dates: end: 20141027
  5. LORYNA [Concomitant]
     Active Substance: DROSPIRENONE\ETHINYL ESTRADIOL
     Dosage: 1 DF, QD
     Route: 048
  6. MOTRIN [Concomitant]
     Active Substance: IBUPROFEN
     Dosage: 200 MG, UNKNOWN
     Route: 048
  7. IRON [Concomitant]
     Active Substance: IRON
     Dosage: UNK, UNKNOWN
     Route: 065
  8. CYMBALTA [Suspect]
     Active Substance: DULOXETINE HYDROCHLORIDE
     Dosage: 60 MG, QD
     Route: 048
     Dates: start: 20141208, end: 20150115
  9. HUMALOG MIX75/25 [Concomitant]
     Active Substance: INSULIN LISPRO
     Dosage: UNK, UNKNOWN
     Route: 058
  10. FERROUS SULFATE. [Concomitant]
     Active Substance: FERROUS SULFATE
     Dosage: UNK UNK, TID
     Route: 065
  11. CALCIUM + MAGNESIUM [Concomitant]
     Dosage: UNK, UNKNOWN
     Route: 065
  12. CYMBALTA [Suspect]
     Active Substance: DULOXETINE HYDROCHLORIDE
     Dosage: 30 MG, QD
     Route: 048
     Dates: start: 20150115, end: 20150714
  13. AMITRIPTYLINE [Concomitant]
     Active Substance: AMITRIPTYLINE
     Dosage: 10 MG, QD
     Route: 048
  14. SYNTHROID [Concomitant]
     Active Substance: LEVOTHYROXINE SODIUM
     Dosage: 50 UG, QD
     Route: 048
  15. BIOTIN [Concomitant]
     Active Substance: BIOTIN
     Dosage: UNK, UNKNOWN
     Route: 065
  16. CYMBALTA [Suspect]
     Active Substance: DULOXETINE HYDROCHLORIDE
     Dosage: 90 MG, QD
     Route: 048
     Dates: start: 20141027, end: 20141208
  17. AMBIEN [Suspect]
     Active Substance: ZOLPIDEM TARTRATE
     Dosage: 10 MG, EACH EVENING
     Route: 065

REACTIONS (25)
  - Menstruation irregular [Unknown]
  - Eye pain [Unknown]
  - Dry eye [Unknown]
  - Memory impairment [Unknown]
  - Hyperhidrosis [Unknown]
  - Fatigue [Unknown]
  - Nausea [Unknown]
  - Drug withdrawal syndrome [Unknown]
  - Malaise [Unknown]
  - Sinusitis [Unknown]
  - Cough [Unknown]
  - Pain [Unknown]
  - Insomnia [Unknown]
  - Bronchitis [Unknown]
  - Vomiting [Unknown]
  - Ear pain [Unknown]
  - Chest pain [Unknown]
  - Dizziness [Unknown]
  - Dyspnoea [Unknown]
  - Abdominal pain [Unknown]
  - Oropharyngeal pain [Unknown]
  - Chills [Unknown]
  - Urinary tract infection [Unknown]
  - Diarrhoea [Unknown]
  - Vision blurred [Unknown]

NARRATIVE: CASE EVENT DATE: 201412
